FAERS Safety Report 8791319 (Version 2)
Quarter: 2012Q4

REPORT INFORMATION
  Report Type: Spontaneous
  Country: JP (occurrence: None)
  Receive Date: 20120912
  Receipt Date: 20121011
  Transmission Date: 20130627
  Serious: Yes (Hospitalization)
  Sender: FDA-Public Use
  Company Number: ENT 2012-0122

PATIENT
  Age: 66 Year
  Sex: Male

DRUGS (6)
  1. COMTAN [Suspect]
     Indication: PARKINSON^S DISEASE
     Dosage: 600 mg (100 mg, 6 in 1 d) oral
     Route: 048
     Dates: start: 20120725
  2. COMTAN [Suspect]
     Indication: PARKINSON^S DISEASE
     Dosage: 600 mg (100 mg, 6 in 1 d)
  3. MADOPAR [Concomitant]
  4. ARTANE [Concomitant]
  5. FP [Concomitant]
  6. DOPS [Concomitant]

REACTIONS (2)
  - Respiratory disorder [None]
  - Decreased appetite [None]
